FAERS Safety Report 9079724 (Version 2)
Quarter: 2013Q1

REPORT INFORMATION
  Report Type: Spontaneous
  Country: US (occurrence: US)
  Receive Date: 20130215
  Receipt Date: 20130329
  Transmission Date: 20140127
  Serious: Yes (Other)
  Sender: FDA-Public Use
  Company Number: US-GLAXOSMITHKLINE-A1011448A

PATIENT
  Age: 46 Year
  Sex: Male

DRUGS (7)
  1. ADVAIR [Suspect]
     Indication: ASTHMA
     Dosage: 1PUFF TWICE PER DAY
     Route: 055
     Dates: start: 2004
  2. PRAVASTATIN [Concomitant]
  3. LISINOPRIL [Concomitant]
  4. IBUPROFEN [Concomitant]
  5. OMEPRAZOLE [Concomitant]
  6. RANITIDINE [Concomitant]
  7. ASPIRIN [Concomitant]

REACTIONS (4)
  - Pulmonary congestion [Recovering/Resolving]
  - Dyspnoea [Recovering/Resolving]
  - Nasopharyngitis [Recovering/Resolving]
  - Product quality issue [Unknown]
